FAERS Safety Report 10020748 (Version 2)
Quarter: 2014Q2

REPORT INFORMATION
  Report Type: Spontaneous
  Country: GB (occurrence: GB)
  Receive Date: 20140319
  Receipt Date: 20140425
  Transmission Date: 20141212
  Serious: Yes (Other)
  Sender: FDA-Public Use
  Company Number: GB-ROCHE-1366589

PATIENT
  Sex: Male

DRUGS (3)
  1. NEORECORMON [Suspect]
     Indication: PRODUCT USED FOR UNKNOWN INDICATION
     Route: 065
     Dates: start: 201203
  2. MIRCERA [Suspect]
     Indication: PRODUCT USED FOR UNKNOWN INDICATION
     Route: 065
     Dates: start: 201304
  3. EPREX [Concomitant]
     Route: 065
     Dates: start: 201307

REACTIONS (2)
  - Aplasia pure red cell [Not Recovered/Not Resolved]
  - Anti-erythropoietin antibody positive [Unknown]
